FAERS Safety Report 6201581-8 (Version None)
Quarter: 2009Q2

REPORT INFORMATION
  Report Type: 
  Country: None (occurrence: None)
  Receive Date: 20090526
  Receipt Date: 20090513
  Transmission Date: 20091009
  Serious: Yes (Hospitalization)
  Sender: FDA-Public Use
  Company Number: ES-TEVA-195453USA

PATIENT
  Age: 49 Year
  Sex: Female

DRUGS (5)
  1. BISELECT [Suspect]
     Indication: HYPERTENSION
     Route: 048
     Dates: start: 20080201, end: 20081227
  2. SUTENT [Interacting]
     Indication: RENAL CELL CARCINOMA STAGE IV
     Route: 048
     Dates: start: 20081101, end: 20081204
  3. LOSARTAN POTASSIUM [Concomitant]
     Indication: HYPERTENSION
     Route: 048
     Dates: start: 20080901, end: 20081227
  4. OMEPRAZOLE [Concomitant]
     Indication: PROPHYLAXIS
     Route: 048
     Dates: start: 20080101
  5. LEXANTIN (BROMAZEPAN) [Concomitant]
     Indication: DEPRESSION
     Route: 048

REACTIONS (2)
  - DRUG INTERACTION [None]
  - LEFT VENTRICULAR FAILURE [None]
